FAERS Safety Report 17614947 (Version 1)
Quarter: 2020Q2

REPORT INFORMATION
  Report Type: Report from Study
  Country: US (occurrence: US)
  Receive Date: 20200402
  Receipt Date: 20200402
  Transmission Date: 20200713
  Serious: Yes (Hospitalization)
  Sender: FDA-Public Use
  Company Number: US-BIOGEN-2020BI00856263

PATIENT
  Sex: Female

DRUGS (1)
  1. TECFIDERA [Suspect]
     Active Substance: DIMETHYL FUMARATE
     Indication: MULTIPLE SCLEROSIS
     Route: 065
     Dates: start: 20170710

REACTIONS (5)
  - Cellulitis [Unknown]
  - Hemianaesthesia [Recovered/Resolved with Sequelae]
  - Neuropathy peripheral [Unknown]
  - Hypoaesthesia [Unknown]
  - Blister [Unknown]

NARRATIVE: CASE EVENT DATE: 2019
